FAERS Safety Report 13354030 (Version 1)
Quarter: 2017Q1

REPORT INFORMATION
  Report Type: Spontaneous
  Country: US (occurrence: US)
  Receive Date: 20170321
  Receipt Date: 20170321
  Transmission Date: 20170429
  Serious: No
  Sender: FDA-Public Use
  Company Number: US-PFIZER INC-2017119482

PATIENT
  Sex: Female
  Weight: 103 kg

DRUGS (2)
  1. GENOTROPIN [Suspect]
     Active Substance: SOMATROPIN
     Dosage: UNK
     Dates: end: 201702
  2. CORTEF [Concomitant]
     Active Substance: HYDROCORTISONE
     Dosage: AT A MAINTENANCE LEVEL AND ANYTIME SHE IS ILL HER DOSE IS ADJUSTED

REACTIONS (3)
  - Adrenal disorder [Not Recovered/Not Resolved]
  - Swelling [Not Recovered/Not Resolved]
  - Fatigue [Not Recovered/Not Resolved]

NARRATIVE: CASE EVENT DATE: 2015
